FAERS Safety Report 13011186 (Version 2)
Quarter: 2016Q4

REPORT INFORMATION
  Report Type: Spontaneous
  Country: US (occurrence: US)
  Receive Date: 20161208
  Receipt Date: 20161210
  Transmission Date: 20170207
  Serious: No
  Sender: FDA-Public Use
  Company Number: PHEH2016US031676

PATIENT
  Sex: Male

DRUGS (1)
  1. COSENTYX [Suspect]
     Active Substance: SECUKINUMAB
     Indication: PRODUCT USED FOR UNKNOWN INDICATION
     Dosage: 150 MG/ML, QW
     Route: 065

REACTIONS (4)
  - Incorrect dose administered by device [Unknown]
  - Accidental exposure to product [Unknown]
  - Device malfunction [Unknown]
  - Injection site haemorrhage [Unknown]
